FAERS Safety Report 10056033 (Version 1)
Quarter: 2014Q2

REPORT INFORMATION
  Report Type: Spontaneous
  Country: US (occurrence: US)
  Receive Date: 20140403
  Receipt Date: 20140403
  Transmission Date: 20141212
  Serious: Yes (Other)
  Sender: FDA-Public Use
  Company Number: US-PFIZER INC-2014091695

PATIENT
  Age: 51 Year
  Sex: Female

DRUGS (10)
  1. GABAPENTIN [Suspect]
     Indication: PAIN
     Dosage: 600 MG, 3X/DAY
  2. GABAPENTIN [Suspect]
     Dosage: 300 MG, 3X/DAY
  3. GLYBURIDE [Concomitant]
  4. METFORMIN [Concomitant]
  5. BACLOFEN [Concomitant]
  6. TRUVADA [Concomitant]
  7. DARUNAVIR [Concomitant]
  8. ASPIRIN [Concomitant]
  9. TRAZODONE [Concomitant]
  10. RITONAVIR [Concomitant]

REACTIONS (1)
  - Drug-induced liver injury [Unknown]
